FAERS Safety Report 16385099 (Version 3)
Quarter: 2019Q4

REPORT INFORMATION
  Report Type: Spontaneous
  Country: US (occurrence: US)
  Receive Date: 20190603
  Receipt Date: 20191115
  Transmission Date: 20200122
  Serious: Yes (Other)
  Sender: FDA-Public Use
  Company Number: US-BAUSCH-BL-2019-015804

PATIENT
  Age: 49 Year
  Sex: Female
  Weight: 59.93 kg

DRUGS (4)
  1. SILIQ [Suspect]
     Active Substance: BRODALUMAB
     Route: 058
     Dates: start: 2019
  2. PREDNISONE. [Concomitant]
     Active Substance: PREDNISONE
     Indication: IRITIS
     Route: 047
     Dates: start: 20190522
  3. SILIQ [Suspect]
     Active Substance: BRODALUMAB
     Indication: PSORIASIS
     Dosage: ONE INJECTION AT WEEKS 0, 1, AND 2
     Route: 058
     Dates: start: 201811, end: 2018
  4. SILIQ [Suspect]
     Active Substance: BRODALUMAB
     Dosage: ONE INJECTION EVERY 2 WEEKS
     Route: 058
     Dates: start: 2018, end: 20190810

REACTIONS (6)
  - Arthralgia [Unknown]
  - Therapy cessation [Unknown]
  - Insurance issue [Unknown]
  - Therapeutic response unexpected [Unknown]
  - Psoriasis [Unknown]
  - Uveitis [Unknown]

NARRATIVE: CASE EVENT DATE: 2019
